FAERS Safety Report 6375246-6 (Version None)
Quarter: 2009Q3

REPORT INFORMATION
  Report Type: 
  Country: None (occurrence: None)
  Receive Date: 20090924
  Receipt Date: 20090910
  Transmission Date: 20100115
  Serious: Yes (Disabling, Other)
  Sender: FDA-Public Use
  Company Number: NO-PFIZER INC-2009266558

PATIENT
  Age: 48 Year

DRUGS (5)
  1. XANOR [Suspect]
     Indication: PAIN
     Dosage: (2+2+2+3 MG)
     Route: 048
     Dates: start: 20050901, end: 20090316
  2. CIPRALEX [Suspect]
     Indication: DEPRESSION
     Route: 048
     Dates: start: 20060912, end: 20090811
  3. SOBRIL [Concomitant]
     Dates: start: 20050101, end: 20060101
  4. NOZINAN [Concomitant]
     Dosage: WHEN NEEDED
  5. SAROTEX [Concomitant]
     Dosage: WHEN NEEDED
     Route: 048

REACTIONS (20)
  - ABDOMINAL DISTENSION [None]
  - ABDOMINAL PAIN [None]
  - ANXIETY [None]
  - APATHY [None]
  - CONFUSIONAL STATE [None]
  - DEPERSONALISATION [None]
  - DIARRHOEA [None]
  - DYSGEUSIA [None]
  - DYSPNOEA [None]
  - HEADACHE [None]
  - HYPERHIDROSIS [None]
  - INTRAOCULAR PRESSURE INCREASED [None]
  - MUSCLE SPASMS [None]
  - PRURITUS [None]
  - PSYCHIATRIC SYMPTOM [None]
  - RESTLESSNESS [None]
  - SLEEP DISORDER [None]
  - SUICIDAL IDEATION [None]
  - TINNITUS [None]
  - TREMOR [None]
